FAERS Safety Report 18316535 (Version 1)
Quarter: 2020Q3

REPORT INFORMATION
  Report Type: Other
  Country: US (occurrence: US)
  Receive Date: 20200927
  Receipt Date: 20200927
  Transmission Date: 20201103
  Serious: Yes (Other)
  Sender: FDA-Public Use
  Company Number: US-ROCHE-2677590

PATIENT
  Age: 28 Year
  Sex: Female

DRUGS (4)
  1. OSELTAMIVIR [Suspect]
     Active Substance: OSELTAMIVIR
     Indication: INFLUENZA
     Route: 065
     Dates: start: 20191213
  2. OSELTAMIVIR [Suspect]
     Active Substance: OSELTAMIVIR
     Route: 065
     Dates: start: 20200101
  3. BALOXAVIR MARBOXIL. [Suspect]
     Active Substance: BALOXAVIR MARBOXIL
     Route: 065
     Dates: start: 20191210
  4. BALOXAVIR MARBOXIL. [Suspect]
     Active Substance: BALOXAVIR MARBOXIL
     Indication: INFLUENZA
     Route: 065
     Dates: start: 20191206

REACTIONS (13)
  - Encephalitis [Unknown]
  - Myocardial infarction [Unknown]
  - Cerebrovascular accident [Unknown]
  - Pericarditis [Unknown]
  - Ear infection [Unknown]
  - Chronic obstructive pulmonary disease [Unknown]
  - Myositis [Unknown]
  - Myocarditis [Unknown]
  - Pericarditis [Unknown]
  - Cerebrovascular accident [Unknown]
  - Sinusitis [Unknown]
  - Myocarditis [Unknown]
  - Asthma [Unknown]

NARRATIVE: CASE EVENT DATE: 20191207
